FAERS Safety Report 4305091-4 (Version None)
Quarter: 2004Q1

REPORT INFORMATION
  Report Type: 
  Country: None (occurrence: None)
  Receive Date: 20040224
  Receipt Date: 20040224
  Transmission Date: 20041129
  Serious: Yes (Other)
  Sender: FDA-Public Use
  Company Number: None

PATIENT
  Age: 70 Year
  Sex: Male
  Weight: 94.8 kg

DRUGS (12)
  1. TERAZOSIN HCL [Suspect]
  2. ACCU-CHEK COMFORT CURVE-H TEST STRIP [Concomitant]
  3. MELOXICAM [Concomitant]
  4. METOPROLOL TARTRATE [Concomitant]
  5. CLOPIDOGREL BISULFATE [Concomitant]
  6. TERAZOSIN HCL [Concomitant]
  7. FOSINOPRIL NA [Concomitant]
  8. GLYBURIDE [Concomitant]
  9. ADALAT CC [Concomitant]
  10. LIDOCAINE [Concomitant]
  11. HYDROXYPROPYL ME CELLULOSE [Concomitant]
  12. LUBRICATING OPH OINT [Concomitant]

REACTIONS (1)
  - HYPOTENSION [None]
